FAERS Safety Report 9210369 (Version 2)
Quarter: 2013Q4

REPORT INFORMATION
  Report Type: Spontaneous
  Country: US (occurrence: US)
  Receive Date: 20130404
  Receipt Date: 20131231
  Transmission Date: 20140711
  Serious: Yes (Other)
  Sender: FDA-Public Use
  Company Number: US-BAYER-2013-040724

PATIENT
  Age: 19 Year
  Sex: Female

DRUGS (6)
  1. YAZ [Suspect]
     Dosage: UNK
     Dates: start: 20111107
  2. YASMIN [Suspect]
     Dosage: UNK
     Dates: start: 20111107
  3. OCELLA [Suspect]
     Dosage: UNK
     Dates: start: 20111107
  4. GIANVI [Suspect]
     Dosage: UNK
     Dates: start: 20111107
  5. EPIPEN [Concomitant]
  6. SINGULAIR [Concomitant]
     Dosage: 10 MG, UNK

REACTIONS (10)
  - Gallbladder injury [None]
  - Deep vein thrombosis [None]
  - Cholecystitis chronic [None]
  - Biliary dyskinesia [None]
  - Emotional distress [None]
  - General physical health deterioration [None]
  - Injury [None]
  - Pain [None]
  - Anxiety [None]
  - Pain [None]
